FAERS Safety Report 15401940 (Version 3)
Quarter: 2018Q4

REPORT INFORMATION
  Report Type: Spontaneous
  Country: IT (occurrence: IT)
  Receive Date: 20180919
  Receipt Date: 20181031
  Transmission Date: 20190204
  Serious: Yes (Other)
  Sender: FDA-Public Use
  Company Number: IT-BAYER-2018-139972

PATIENT
  Age: 11 Month
  Sex: Male

DRUGS (2)
  1. KOVALTRY [Suspect]
     Active Substance: ANTIHEMOPHILIC FACTOR, HUMAN RECOMBINANT
     Indication: PROPHYLAXIS
     Dosage: 500 IU, BOLUS INJECTION
  2. KOVALTRY [Suspect]
     Active Substance: ANTIHEMOPHILIC FACTOR, HUMAN RECOMBINANT
     Indication: FACTOR VIII DEFICIENCY
     Dosage: 1000 IU, BIW, BOLUS INJECTION
     Dates: start: 20170914

REACTIONS (3)
  - Anti factor VIII antibody increased [Recovering/Resolving]
  - Skin haemorrhage [None]
  - Drug ineffective [None]

NARRATIVE: CASE EVENT DATE: 20170824
